FAERS Safety Report 24444083 (Version 2)
Quarter: 2024Q4

REPORT INFORMATION
  Report Type: Report from Study
  Country: ZA (occurrence: ZA)
  Receive Date: 20241016
  Receipt Date: 20241017
  Transmission Date: 20250115
  Serious: No
  Sender: ROCHE
  Company Number: ZA-ROCHE-2668144

PATIENT
  Age: 63 Year
  Sex: Female

DRUGS (3)
  1. MABTHERA [Suspect]
     Active Substance: RITUXIMAB
     Indication: Rheumatoid arthritis
     Dosage: LAST INFUSION WAS 07/SEP/2020, 21/SEP/2020 AND 19/JAN/2022
     Route: 041
     Dates: start: 20161031
  2. MABTHERA [Suspect]
     Active Substance: RITUXIMAB
     Dosage: REPEATED 6-MONTHLY (NOW DOSAGE CHANGING TO 1000MG STAT EVERY 6-MONTHS)
     Route: 041
     Dates: start: 201610
  3. RITUXIMAB [Suspect]
     Active Substance: RITUXIMAB
     Indication: Rheumatoid arthritis
     Route: 041
     Dates: start: 20230906

REACTIONS (9)
  - Rheumatoid arthritis [Unknown]
  - Treatment noncompliance [Unknown]
  - Alanine aminotransferase increased [Unknown]
  - Aspartate aminotransferase increased [Unknown]
  - Rheumatoid factor increased [Unknown]
  - Alanine aminotransferase increased [Unknown]
  - C-reactive protein increased [Unknown]
  - Aspartate aminotransferase increased [Unknown]
  - Off label use [Unknown]

NARRATIVE: CASE EVENT DATE: 20210323
